FAERS Safety Report 16317451 (Version 1)
Quarter: 2019Q2

REPORT INFORMATION
  Report Type: Spontaneous
  Country: DE (occurrence: DE)
  Receive Date: 20190516
  Receipt Date: 20190516
  Transmission Date: 20190711
  Serious: Yes (Hospitalization)
  Sender: FDA-Public Use
  Company Number: DE-TEVA-2019-DE-1049739

PATIENT
  Age: 22 Year
  Sex: Male
  Weight: 95 kg

DRUGS (9)
  1. ETHAMBUTOL [Suspect]
     Active Substance: ETHAMBUTOL HYDROCHLORIDE
     Indication: TUBERCULOSIS
     Dosage: INITIALLY, GIVEN IV AS HE WAS BARELY ABLE TO EAT
     Route: 042
  2. LEVOFLOXACIN. [Suspect]
     Active Substance: LEVOFLOXACIN
     Indication: TUBERCULOSIS
     Dosage: INITIALLY, GIVEN IV AS HE WAS BARELY ABLE TO EAT
     Route: 042
  3. ISONIAZID. [Suspect]
     Active Substance: ISONIAZID
     Indication: TUBERCULOSIS
     Route: 048
  4. RIFAMPIN. [Suspect]
     Active Substance: RIFAMPIN
     Indication: TUBERCULOSIS
     Dosage: INITIALLY, GIVEN IV AS HE WAS BARELY ABLE TO EAT
     Route: 042
  5. ETHAMBUTOL [Suspect]
     Active Substance: ETHAMBUTOL HYDROCHLORIDE
     Indication: TUBERCULOSIS
     Route: 048
  6. RIFAMPIN. [Suspect]
     Active Substance: RIFAMPIN
     Indication: TUBERCULOSIS
     Route: 048
  7. ISONIAZID. [Suspect]
     Active Substance: ISONIAZID
     Indication: TUBERCULOSIS
     Dosage: INITIALLY, GIVEN IV AS HE WAS BARELY ABLE TO EAT
     Route: 042
  8. PYRAZINAMIDE. [Suspect]
     Active Substance: PYRAZINAMIDE
     Indication: TUBERCULOSIS
     Route: 048
  9. PYRIDOXINE [Concomitant]
     Active Substance: PYRIDOXINE
     Indication: DRUG TOXICITY PROPHYLAXIS
     Route: 065

REACTIONS (9)
  - Unmasking of previously unidentified disease [Recovered/Resolved]
  - Immune reconstitution inflammatory syndrome [Recovered/Resolved]
  - Brain oedema [Recovered/Resolved]
  - Cryptococcosis [Recovered/Resolved]
  - Hemiplegia [Recovered/Resolved]
  - Paradoxical drug reaction [Recovered/Resolved]
  - Central nervous system necrosis [Recovered/Resolved]
  - Haemoglobin decreased [Recovered/Resolved]
  - Disorientation [Recovered/Resolved]
